FAERS Safety Report 7349955-6 (Version None)
Quarter: 2011Q1

REPORT INFORMATION
  Report Type: 
  Country: None (occurrence: None)
  Receive Date: 20110314
  Receipt Date: 20110303
  Transmission Date: 20110831
  Serious: Yes (Hospitalization)
  Sender: FDA-Public Use
  Company Number: FR-BRISTOL-MYERS SQUIBB COMPANY-15590987

PATIENT
  Age: 72 Year
  Sex: Female

DRUGS (7)
  1. IRBESARTAN [Suspect]
     Indication: HYPERTENSION
     Route: 048
     Dates: start: 20101101, end: 20110112
  2. TRIATEC [Suspect]
     Indication: HYPERTENSION
     Dosage: 1DF=1 UNITS NOT MENTIONED TRIATEC 10 MG
     Route: 048
     Dates: start: 20100401, end: 20100601
  3. KARDEGIC [Concomitant]
  4. CRESTOR [Concomitant]
  5. CARDENSIEL [Concomitant]
  6. TELMISARTAN [Suspect]
     Indication: HYPERTENSION
     Dosage: 1DF=1 UNIT/DAY PRITOR 80MG
     Route: 048
     Dates: start: 20100601, end: 20100901
  7. LASIX [Concomitant]

REACTIONS (3)
  - BIOPSY SALIVARY GLAND ABNORMAL [None]
  - WEIGHT DECREASED [None]
  - DYSGEUSIA [None]
